FAERS Safety Report 19505175 (Version 1)
Quarter: 2021Q3

REPORT INFORMATION
  Report Type: Spontaneous
  Country: IT (occurrence: IT)
  Receive Date: 20210707
  Receipt Date: 20210707
  Transmission Date: 20211014
  Serious: Yes (Death, Other)
  Sender: FDA-Public Use
  Company Number: IT-ASTRAZENECA-2021A562042

PATIENT
  Age: 41 Year
  Sex: Male
  Weight: 72 kg

DRUGS (11)
  1. LORAZEPAM. [Suspect]
     Active Substance: LORAZEPAM
     Dosage: UNK
     Route: 065
  2. SCOPOLAMINE BROMIDE [HYOSCINE HYDROBROMIDE] [Suspect]
     Active Substance: SCOPOLAMINE HYDROBROMIDE
     Dosage: UNK
     Route: 065
  3. SEROQUEL [Suspect]
     Active Substance: QUETIAPINE FUMARATE
     Dosage: UNK
     Route: 048
  4. BUSCOPAN [Suspect]
     Active Substance: BUTYLSCOPOLAMINE BROMIDE
     Dosage: UNK
     Route: 065
  5. TEMAZEPAM. [Suspect]
     Active Substance: TEMAZEPAM
     Dosage: UNK
     Route: 065
  6. VALPROIC ACID. [Suspect]
     Active Substance: VALPROIC ACID
     Dosage: UNK
     Route: 065
  7. TRIAZOLAM. [Suspect]
     Active Substance: TRIAZOLAM
     Dosage: UNK
     Route: 065
  8. REMERON [Suspect]
     Active Substance: MIRTAZAPINE
     Dosage: UNK
     Route: 048
  9. OXAZEPAM. [Suspect]
     Active Substance: OXAZEPAM
     Dosage: UNK
     Route: 065
  10. NORDIAZEPAM [Suspect]
     Active Substance: NORDAZEPAM
     Dosage: UNK
     Route: 065
  11. DIAZEPAM. [Suspect]
     Active Substance: DIAZEPAM
     Dosage: UNK
     Route: 065

REACTIONS (2)
  - Drug abuse [Fatal]
  - Toxicity to various agents [Fatal]
